FAERS Safety Report 14695506 (Version 1)
Quarter: 2018Q1

REPORT INFORMATION
  Report Type: Spontaneous
  Country: DK (occurrence: DK)
  Receive Date: 20180329
  Receipt Date: 20180329
  Transmission Date: 20180509
  Serious: Yes (Death, Hospitalization, Other)
  Sender: FDA-Public Use
  Company Number: DK-BRISTOL-MYERS SQUIBB COMPANY-BMS-2018-027326

PATIENT
  Age: 83 Year
  Sex: Male

DRUGS (4)
  1. MORPHINE [Interacting]
     Active Substance: MORPHINE
     Indication: BACK PAIN
     Dosage: 30 MG, INTEVAL OF 1 DAY
     Route: 065
  2. WARFARIN SODIUM. [Suspect]
     Active Substance: WARFARIN SODIUM
     Indication: ANTICOAGULANT THERAPY
     Route: 065
  3. PARACETAMOL [Interacting]
     Active Substance: ACETAMINOPHEN
     Indication: BACK PAIN
     Dosage: 4 G, DAILY
     Route: 065
  4. DICLOFENAC [Interacting]
     Active Substance: DICLOFENAC
     Indication: BACK PAIN
     Route: 065

REACTIONS (3)
  - International normalised ratio increased [Unknown]
  - Drug interaction [Fatal]
  - Cerebral haemorrhage [Fatal]
